FAERS Safety Report 16844611 (Version 1)
Quarter: 2019Q3

REPORT INFORMATION
  Report Type: Spontaneous
  Country: IL (occurrence: IL)
  Receive Date: 20190924
  Receipt Date: 20190924
  Transmission Date: 20191005
  Serious: Yes (Other)
  Sender: FDA-Public Use
  Company Number: IL-TEVA-2019-IL-1113705

PATIENT
  Age: 58 Year
  Sex: Female

DRUGS (6)
  1. CODEINE [Suspect]
     Active Substance: CODEINE
     Route: 065
  2. ROKACET [Suspect]
     Active Substance: ACETAMINOPHEN\CAFFEINE\CODEINE PHOSPHATE
     Route: 065
  3. NAROCIN [Suspect]
     Active Substance: NAPROXEN SODIUM
     Route: 065
  4. TRAMAL [Concomitant]
     Active Substance: TRAMADOL
  5. NAXYN [Suspect]
     Active Substance: NAPROXEN
     Route: 065
  6. ACAMOL [Suspect]
     Active Substance: ACETAMINOPHEN
     Route: 065

REACTIONS (4)
  - Gastric haemorrhage [Unknown]
  - Haematochezia [Unknown]
  - Pain [Unknown]
  - Therapeutic product ineffective [Unknown]
